FAERS Safety Report 4635124-7 (Version None)
Quarter: 2005Q2

REPORT INFORMATION
  Report Type: 
  Country: None (occurrence: None)
  Receive Date: 20050414
  Receipt Date: 20050401
  Transmission Date: 20051028
  Serious: Yes (Other)
  Sender: FDA-Public Use
  Company Number: US-GLAXOSMITHKLINE-A0552246A

PATIENT
  Age: 56 Year
  Sex: Male
  Weight: 84 kg

DRUGS (3)
  1. NICORETTE [Suspect]
     Route: 002
     Dates: start: 20040101
  2. TARGET ORIGINAL 2MG [Suspect]
     Route: 002
     Dates: start: 20050301
  3. NICOTINE [Suspect]
     Route: 002
     Dates: start: 20040901

REACTIONS (5)
  - DEPENDENCE [None]
  - ENERGY INCREASED [None]
  - EUPHORIC MOOD [None]
  - NICOTINE DEPENDENCE [None]
  - VISUAL ACUITY REDUCED [None]
